FAERS Safety Report 9011753 (Version 1)
Quarter: 2012Q4

REPORT INFORMATION
  Report Type: Spontaneous
  Country: US (occurrence: None)
  Receive Date: 20121228
  Receipt Date: 20121228
  Transmission Date: 20130627
  Serious: Yes (Other)
  Sender: FDA-Public Use
  Company Number: 2012AP004358

PATIENT
  Age: 26 Year
  Sex: Male

DRUGS (2)
  1. AZITHROMYCIN TABLETS [Suspect]
     Indication: NEISSERIA GONORRHOEAE INFECTION
     Route: 048
     Dates: start: 201108
  2. AZITHROMYCIN TABLETS [Suspect]
     Indication: NEISSERIA GONORRHOEAE INFECTION
     Route: 048

REACTIONS (4)
  - Pathogen resistance [None]
  - Urethritis [None]
  - Urethritis [None]
  - Neisseria test positive [None]
